FAERS Safety Report 13900705 (Version 6)
Quarter: 2018Q2

REPORT INFORMATION
  Report Type: Report from Study
  Country: CO (occurrence: CO)
  Receive Date: 20170824
  Receipt Date: 20180405
  Transmission Date: 20180711
  Serious: Yes (Other)
  Sender: FDA-Public Use
  Company Number: CO-BAYER-2017-152096

PATIENT
  Age: 52 Year
  Sex: Female

DRUGS (8)
  1. ACETAMINOPHEN. [Concomitant]
     Active Substance: ACETAMINOPHEN
  2. NEXAVAR [Suspect]
     Active Substance: SORAFENIB
     Indication: THYROID CANCER
     Dosage: 600 MG PER DAY
     Route: 048
     Dates: start: 2017, end: 201708
  3. NEXAVAR [Suspect]
     Active Substance: SORAFENIB
     Indication: THYROID CANCER
     Dosage: 200 MG, BID
     Route: 048
     Dates: end: 20180327
  4. NEXAVAR [Suspect]
     Active Substance: SORAFENIB
     Indication: THYROID CANCER
     Dosage: 200 MG, BID
     Route: 048
     Dates: start: 201801, end: 20180212
  5. NEXAVAR [Suspect]
     Active Substance: SORAFENIB
     Indication: THYROID CANCER
     Dosage: UNK (DURING 3 DAYS 1 TAB EVERY 12 HRS AND AFTER THAT 1 TAB IN THE MORNING AND 2 TABS 12HRS AFTER)
     Dates: start: 2017
  6. LEVOTHYROXINE. [Concomitant]
     Active Substance: LEVOTHYROXINE
     Dosage: 65 MG, UNK
  7. DIPYRONE [Concomitant]
     Active Substance: DIPYRONE
  8. NEXAVAR [Suspect]
     Active Substance: SORAFENIB
     Indication: THYROID CANCER
     Dosage: 800 MG, QD
     Route: 048
     Dates: start: 20170720, end: 20170728

REACTIONS (19)
  - Pruritus [Not Recovered/Not Resolved]
  - Gastrooesophageal reflux disease [Not Recovered/Not Resolved]
  - Nasal inflammation [Not Recovered/Not Resolved]
  - Rhinalgia [Not Recovered/Not Resolved]
  - Influenza [Not Recovered/Not Resolved]
  - Erythema [Recovered/Resolved]
  - Oral mucosal blistering [Not Recovered/Not Resolved]
  - Rhinalgia [Recovered/Resolved]
  - Biopsy [Recovered/Resolved]
  - Rash [Not Recovered/Not Resolved]
  - Burning sensation [Not Recovered/Not Resolved]
  - Nasal oedema [Not Recovered/Not Resolved]
  - Rash generalised [Recovered/Resolved]
  - Nasal oedema [Recovered/Resolved]
  - Pharyngeal inflammation [Not Recovered/Not Resolved]
  - Rhinalgia [Unknown]
  - Influenza [None]
  - Sinusitis [None]
  - Rash [Not Recovered/Not Resolved]

NARRATIVE: CASE EVENT DATE: 20170724
